FAERS Safety Report 4365483-4 (Version None)
Quarter: 2004Q2

REPORT INFORMATION
  Report Type: 
  Country: None (occurrence: None)
  Receive Date: 20040526
  Receipt Date: 20040518
  Transmission Date: 20050107
  Serious: Yes (Hospitalization)
  Sender: FDA-Public Use
  Company Number: FR-BRISTOL-MYERS SQUIBB COMPANY-12589750

PATIENT
  Age: 80 Year
  Sex: Female

DRUGS (2)
  1. COAPROVEL TABS [Suspect]
     Route: 048
     Dates: end: 20040114
  2. EFFEXOR [Concomitant]
     Dates: end: 20031215

REACTIONS (2)
  - CONFUSIONAL STATE [None]
  - HYPONATRAEMIA [None]
